FAERS Safety Report 7537999-0 (Version None)
Quarter: 2011Q2

REPORT INFORMATION
  Report Type: 
  Country: None (occurrence: None)
  Receive Date: 20110609
  Receipt Date: 20110525
  Transmission Date: 20111010
  Serious: No
  Sender: FDA-Public Use
  Company Number: US-B.I. PHARMACEUTICALS,INC./RIDGEFIELD-2011-BP-09067BP

PATIENT
  Age: 81 Year
  Sex: Male

DRUGS (9)
  1. MIRAPEX [Suspect]
     Indication: PARKINSON'S DISEASE
     Route: 048
  2. SINEMET [Suspect]
  3. VALIUM [Concomitant]
  4. MYSOLINE [Suspect]
  5. INDERAL [Suspect]
  6. NAPROXEN [Concomitant]
     Dosage: 1000 MG
  7. MYSOLINE [Suspect]
  8. INDERAL [Suspect]
  9. SINEMET [Suspect]

REACTIONS (1)
  - TREMOR [None]
